FAERS Safety Report 16948054 (Version 1)
Quarter: 2019Q4

REPORT INFORMATION
  Report Type: Spontaneous
  Country: US (occurrence: US)
  Receive Date: 20191022
  Receipt Date: 20191022
  Transmission Date: 20200122
  Serious: No
  Sender: FDA-Public Use
  Company Number: US-ROCHE-2353404

PATIENT
  Age: 69 Year
  Sex: Female
  Weight: 62.2 kg

DRUGS (1)
  1. ESBRIET [Suspect]
     Active Substance: PIRFENIDONE
     Indication: IDIOPATHIC PULMONARY FIBROSIS
     Dosage: 3 TABLETS, 3 TIMES PER DAY
     Route: 048
     Dates: start: 20190518, end: 20190618

REACTIONS (4)
  - Diarrhoea [Recovered/Resolved with Sequelae]
  - Cough [Not Recovered/Not Resolved]
  - Asthenia [Not Recovered/Not Resolved]
  - Nausea [Recovered/Resolved with Sequelae]
